FAERS Safety Report 4793667-X (Version None)
Quarter: 2005Q4

REPORT INFORMATION
  Report Type: 
  Country: None (occurrence: None)
  Receive Date: 20051011
  Receipt Date: 20050929
  Transmission Date: 20060501
  Serious: Yes (Other)
  Sender: FDA-Public Use
  Company Number: PHEH2005US10861

PATIENT
  Age: 61 Year
  Sex: Female

DRUGS (4)
  1. HYZAAR [Concomitant]
  2. LIPITOR [Concomitant]
  3. SYNTHROID [Concomitant]
  4. ZELNORM [Suspect]
     Indication: IRRITABLE BOWEL SYNDROME
     Dosage: 6 MG, BID
     Route: 048
     Dates: start: 20050901

REACTIONS (2)
  - BLOOD PRESSURE INCREASED [None]
  - HEADACHE [None]
